FAERS Safety Report 6338438-8 (Version None)
Quarter: 2009Q3

REPORT INFORMATION
  Report Type: 
  Country: None (occurrence: None)
  Receive Date: 20090901
  Receipt Date: 20090817
  Transmission Date: 20100115
  Serious: Yes (Hospitalization)
  Sender: FDA-Public Use
  Company Number: 2008AL004839

PATIENT
  Age: 43 Year
  Sex: Male
  Weight: 86.637 kg

DRUGS (23)
  1. DIGOXIN [Suspect]
     Dosage: 0.25MG, DAILY, PO
     Route: 048
  2. ASPIRIN [Concomitant]
  3. TRAMADOL HCL [Concomitant]
  4. CYCLOBENZAPRINE [Concomitant]
  5. PROPOXYPHEN [Concomitant]
  6. FLUOXETINE [Concomitant]
  7. METOPROLOL TARTRATE [Concomitant]
  8. PREDNISONE [Concomitant]
  9. VYTORIN [Concomitant]
  10. MECLIZINE [Concomitant]
  11. PLAVIX [Concomitant]
  12. LASIX [Concomitant]
  13. ADVAIR HFA [Concomitant]
  14. PREVACID [Concomitant]
  15. TOPROL-XL [Concomitant]
  16. LIPITOR [Concomitant]
  17. COLACE [Concomitant]
  18. PERCOCET [Concomitant]
  19. ASPIRIN [Concomitant]
  20. FERRUS SULFATE [Concomitant]
  21. ALBUTEROL [Concomitant]
  22. LORATADINE [Concomitant]
  23. FLUTICASONE [Concomitant]

REACTIONS (20)
  - ASTHMA [None]
  - BACK PAIN [None]
  - BALANCE DISORDER [None]
  - CARDIAC FAILURE CONGESTIVE [None]
  - CARDIAC STRESS TEST ABNORMAL [None]
  - CARDIOMYOPATHY [None]
  - CERVICAL SPINAL STENOSIS [None]
  - CHEST DISCOMFORT [None]
  - CORONARY ARTERY DISEASE [None]
  - DECREASED APPETITE [None]
  - DEPRESSION [None]
  - DYSPNOEA [None]
  - ELECTROCARDIOGRAM ABNORMAL [None]
  - HYPERTENSION [None]
  - INTERVERTEBRAL DISC PROTRUSION [None]
  - MULTIPLE INJURIES [None]
  - MUSCULAR WEAKNESS [None]
  - PAIN IN EXTREMITY [None]
  - PULMONARY HYPERTENSION [None]
  - RENAL INJURY [None]
